FAERS Safety Report 7383039-6 (Version None)
Quarter: 2011Q1

REPORT INFORMATION
  Report Type: 
  Country: None (occurrence: None)
  Receive Date: 20110330
  Receipt Date: 20110322
  Transmission Date: 20110831
  Serious: Yes (Hospitalization)
  Sender: FDA-Public Use
  Company Number: TR-BAXTER-2011BH007671

PATIENT
  Age: 14 Month
  Sex: Female
  Weight: 10 kg

DRUGS (1)
  1. GAMMAGARD LIQUID [Suspect]
     Indication: IDIOPATHIC THROMBOCYTOPENIC PURPURA
     Route: 042
     Dates: start: 20110309, end: 20110309

REACTIONS (1)
  - HAEMOLYTIC ANAEMIA [None]
